FAERS Safety Report 9601807 (Version 3)
Quarter: 2014Q2

REPORT INFORMATION
  Report Type: Spontaneous
  Country: US (occurrence: US)
  Receive Date: 20131007
  Receipt Date: 20140404
  Transmission Date: 20141212
  Serious: Yes (Other)
  Sender: FDA-Public Use
  Company Number: US-AMGEN-USASP2013064627

PATIENT
  Age: 54 Year
  Sex: Female

DRUGS (1)
  1. PROLIA [Suspect]
     Indication: OSTEOPOROSIS POSTMENOPAUSAL
     Dosage: UNK
     Route: 065

REACTIONS (8)
  - Exostosis of jaw [Not Recovered/Not Resolved]
  - Bone loss [Unknown]
  - Osteonecrosis of jaw [Unknown]
  - Gingival disorder [Unknown]
  - Tooth disorder [Not Recovered/Not Resolved]
  - Decreased appetite [Unknown]
  - Oral pain [Recovered/Resolved]
  - Weight decreased [Unknown]
